FAERS Safety Report 20429611 (Version 1)
Quarter: 2022Q1

REPORT INFORMATION
  Report Type: Report from Study
  Country: FR (occurrence: FR)
  Receive Date: 20220204
  Receipt Date: 20220204
  Transmission Date: 20220423
  Serious: Yes (Other)
  Sender: FDA-Public Use
  Company Number: FR-SERVIER-S19006399

PATIENT

DRUGS (7)
  1. ONCASPAR [Suspect]
     Active Substance: PEGASPARGASE
     Indication: Acute lymphocytic leukaemia
     Dosage: 1825 IU, ON DAY 12
     Route: 042
     Dates: start: 20190501, end: 20190501
  2. METHYLPREDNISOLONE [Suspect]
     Active Substance: METHYLPREDNISOLONE
     Indication: Acute lymphocytic leukaemia
     Dosage: 48 MG, ON DAY 8
     Route: 042
     Dates: start: 20190428, end: 20190517
  3. TN UNSPECIFIED [Concomitant]
     Indication: Acute lymphocytic leukaemia
     Dosage: 1.1 MG, ON DAYS 8 -15-22-29
     Route: 042
     Dates: start: 20190428, end: 20190518
  4. TN UNSPECIFIED [Concomitant]
     Indication: Acute lymphocytic leukaemia
     Dosage: 23 MG, ON DAYS 8 - 15-22-29
     Route: 042
     Dates: start: 20190428, end: 20190518
  5. TN UNSPECIFIED [Concomitant]
     Indication: Acute lymphocytic leukaemia
     Dosage: 12 MG, ON DAY 1
     Route: 037
     Dates: start: 20190502, end: 20190502
  6. TN UNSPECIFIED [Concomitant]
     Indication: Acute lymphocytic leukaemia
     Dosage: 30 MG, ON DAY 13
     Route: 037
     Dates: start: 20190502, end: 20190502
  7. TN UNSPECIFIED [Concomitant]
     Indication: Acute lymphocytic leukaemia
     Dosage: 15 MG, ON DAY 13
     Route: 037
     Dates: start: 20190502, end: 20190502

REACTIONS (1)
  - Cholestasis [Recovered/Resolved]

NARRATIVE: CASE EVENT DATE: 20190520
